FAERS Safety Report 4756278-8 (Version None)
Quarter: 2005Q3

REPORT INFORMATION
  Report Type: 
  Country: None (occurrence: None)
  Receive Date: 20050830
  Receipt Date: 20050517
  Transmission Date: 20060218
  Serious: No
  Sender: FDA-Public Use
  Company Number: US-GLAXOSMITHKLINE-A0559382A

PATIENT
  Sex: Female

DRUGS (2)
  1. WELLBUTRIN XL [Suspect]
     Indication: MAJOR DEPRESSION
     Dosage: 150MG PER DAY
     Route: 048
     Dates: start: 20050505, end: 20050514
  2. LEXAPRO [Concomitant]
     Indication: MAJOR DEPRESSION
     Dosage: 20MG PER DAY
     Route: 065
     Dates: start: 20040101

REACTIONS (7)
  - ARTHRALGIA [None]
  - DRUG HYPERSENSITIVITY [None]
  - ERYTHEMA [None]
  - JOINT SWELLING [None]
  - PRURITUS [None]
  - RASH [None]
  - URTICARIA [None]
